FAERS Safety Report 7009679-1 (Version None)
Quarter: 2010Q3

REPORT INFORMATION
  Report Type: 
  Country: None (occurrence: None)
  Receive Date: 20100923
  Receipt Date: 20100916
  Transmission Date: 20110219
  Serious: Yes (Disabling, Other)
  Sender: FDA-Public Use
  Company Number: US-PFIZER INC-2010117372

PATIENT
  Sex: Male

DRUGS (5)
  1. LIPITOR [Suspect]
     Dosage: UNK
  2. CARVEDILOL [Interacting]
     Indication: ARRHYTHMIA
     Dosage: UNK, 2X/DAY
     Route: 048
     Dates: start: 20091001
  3. CARVEDILOL [Interacting]
     Dosage: UNK
     Route: 048
  4. SOTALOL [Interacting]
     Dosage: UNK
  5. VALSARTAN [Interacting]
     Dosage: UNK

REACTIONS (4)
  - ASTHENIA [None]
  - DRUG INTERACTION [None]
  - DYSPNOEA [None]
  - FATIGUE [None]
